FAERS Safety Report 9985359 (Version 1)
Quarter: 2014Q1

REPORT INFORMATION
  Report Type: Report from Study
  Country: US (occurrence: US)
  Receive Date: 20140307
  Receipt Date: 20140307
  Transmission Date: 20141002
  Serious: No
  Sender: FDA-Public Use
  Company Number: US-ABBVIE-13P-163-1185008-00

PATIENT
  Sex: Female

DRUGS (10)
  1. HUMIRA [Suspect]
     Indication: RHEUMATOID ARTHRITIS
     Route: 058
  2. EXFORGE [Concomitant]
     Indication: HYPERTENSION
  3. LOVASTATIN [Concomitant]
     Indication: BLOOD CHOLESTEROL INCREASED
  4. JANUMET [Concomitant]
     Indication: DIABETES MELLITUS
  5. METHOTREXATE [Concomitant]
     Indication: RHEUMATOID ARTHRITIS
  6. LEUCOVORIN [Concomitant]
     Indication: RHEUMATOID ARTHRITIS
  7. ASPIRIN [Concomitant]
     Indication: ANTICOAGULANT THERAPY
  8. CITRACAL [Concomitant]
     Indication: VITAMIN SUPPLEMENTATION
  9. CITRACAL [Concomitant]
     Indication: PRODUCT USED FOR UNKNOWN INDICATION
  10. OMEPRAZOLE [Concomitant]
     Indication: GASTROOESOPHAGEAL REFLUX DISEASE

REACTIONS (1)
  - Injection site pain [Not Recovered/Not Resolved]
